FAERS Safety Report 6887028-7 (Version None)
Quarter: 2010Q3

REPORT INFORMATION
  Report Type: 
  Country: None (occurrence: None)
  Receive Date: 20100730
  Receipt Date: 20100728
  Transmission Date: 20110219
  Serious: Yes (Other)
  Sender: FDA-Public Use
  Company Number: PL-ROXANE LABORATORIES, INC.-2010-RO-00937RO

PATIENT
  Sex: Female

DRUGS (1)
  1. LORAZEPAM [Suspect]

REACTIONS (4)
  - DRUG DEPENDENCE [None]
  - GESTATIONAL DIABETES [None]
  - HYPERTENSION [None]
  - INFLAMMATORY MARKER INCREASED [None]
